FAERS Safety Report 9084123 (Version 3)
Quarter: 2013Q2

REPORT INFORMATION
  Report Type: Spontaneous
  Country: US (occurrence: US)
  Receive Date: 20130130
  Receipt Date: 20130606
  Transmission Date: 20140414
  Serious: Yes (Hospitalization)
  Sender: FDA-Public Use
  Company Number: US-ELI_LILLY_AND_COMPANY-US201106004240

PATIENT
  Age: 65 Year
  Sex: Female
  Weight: 59.41 kg

DRUGS (16)
  1. FORTEO [Suspect]
     Indication: OSTEOPOROSIS
     Dosage: 20 UG, QD
     Route: 065
  2. FORTEO [Suspect]
     Dosage: 20 UG, QD
     Route: 065
  3. FORTEO [Suspect]
     Dosage: 20 UG, QD
     Route: 065
     Dates: start: 20110601
  4. FORTEO [Suspect]
     Dosage: 20 UG, QD
     Route: 065
  5. FORTEO [Suspect]
     Dosage: 20 UG, QD
     Route: 065
  6. FORTEO [Suspect]
     Dosage: 20 UG, QD
     Route: 065
  7. FORTEO [Suspect]
     Dosage: 20 UG, QD
  8. PLAVIX                             /01220701/ [Concomitant]
     Indication: CEREBROVASCULAR ACCIDENT
     Dosage: 75 MG, QD
     Route: 065
  9. VITAMIN D [Concomitant]
     Dosage: 1000 MG, QD
     Route: 065
     Dates: start: 2011
  10. VITAMIN D [Concomitant]
     Dosage: 50000 MG, 2/W
     Route: 065
  11. SYMBICORT [Concomitant]
     Indication: EMPHYSEMA
     Dosage: UNK, QD
  12. SPIRIVA [Concomitant]
     Indication: CHEST DISCOMFORT
     Dosage: UNK
  13. SINGULAIR [Concomitant]
     Dosage: 10 MG, QD
  14. MULTIVITAMIN [Concomitant]
     Dosage: UNK, QD
  15. PRAVASTATIN [Concomitant]
     Dosage: UNK, QD
  16. CYCLOBENZAPRINE [Concomitant]
     Dosage: 10 MG, QD

REACTIONS (19)
  - Emphysema [Unknown]
  - Bowel movement irregularity [Unknown]
  - Somnolence [Unknown]
  - Stomatitis [Unknown]
  - Glossitis [Not Recovered/Not Resolved]
  - Glossodynia [Not Recovered/Not Resolved]
  - Oral pain [Recovered/Resolved]
  - Weight decreased [Not Recovered/Not Resolved]
  - Injection site haemorrhage [Unknown]
  - Skin wrinkling [Not Recovered/Not Resolved]
  - Blood calcium decreased [Unknown]
  - Nasopharyngitis [Unknown]
  - Insomnia [Unknown]
  - Injection site pain [Not Recovered/Not Resolved]
  - Injection site bruising [Unknown]
  - Drug dose omission [Recovered/Resolved]
  - Nasopharyngitis [Not Recovered/Not Resolved]
  - Back pain [Unknown]
  - Chronic obstructive pulmonary disease [Unknown]
